FAERS Safety Report 15473063 (Version 2)
Quarter: 2018Q4

REPORT INFORMATION
  Report Type: Spontaneous
  Country: DE (occurrence: DE)
  Receive Date: 20181008
  Receipt Date: 20181023
  Transmission Date: 20190205
  Serious: Yes (Hospitalization, Other)
  Sender: FDA-Public Use
  Company Number: DE-AUROBINDO-AUR-APL-2018-048312

PATIENT
  Age: 68 Year
  Sex: Female
  Weight: 86 kg

DRUGS (17)
  1. IBUPROFEN. [Concomitant]
     Active Substance: IBUPROFEN
     Indication: ADVERSE EVENT
     Dosage: 600 MG, BID
     Route: 065
     Dates: start: 20180813
  2. FLUOROURACIL. [Suspect]
     Active Substance: FLUOROURACIL
     Indication: RECTAL CANCER
     Dosage: QCY () ; CYCLICAL
     Route: 042
     Dates: start: 20180731, end: 20180731
  3. INSULIN BASAL [Concomitant]
     Active Substance: INSULIN NOS
     Indication: PRODUCT USED FOR UNKNOWN INDICATION
     Dosage: UNK
     Route: 065
  4. FLUOROURACIL. [Suspect]
     Active Substance: FLUOROURACIL
     Dosage: 5460 MG, QCY ; CYCLICAL
     Route: 042
     Dates: start: 20180910, end: 20180910
  5. AFLIBERCEPT [Suspect]
     Active Substance: AFLIBERCEPT
     Dosage: 352 MG, QCY ; CYCLICAL
     Route: 042
     Dates: start: 20180910, end: 20180910
  6. ALLOPURINOL. [Concomitant]
     Active Substance: ALLOPURINOL
     Indication: ILL-DEFINED DISORDER
     Dosage: 150 MG, QD
     Route: 065
     Dates: start: 20180813, end: 20180908
  7. OXALIPLATIN CONCENTRATE FOR SOLUTION FOR INFUSION [Suspect]
     Active Substance: OXALIPLATIN
     Indication: RECTAL CANCER
     Dosage: CYCLICAL
     Route: 042
     Dates: start: 20180731, end: 20180731
  8. LEUCOVORIN                         /00566701/ [Suspect]
     Active Substance: LEUCOVORIN
     Indication: RECTAL CANCER
     Dosage: QCY  ; CYCLICAL
     Route: 042
     Dates: start: 20180731, end: 20180731
  9. LEUCOVORIN                         /00566701/ [Suspect]
     Active Substance: LEUCOVORIN
     Dosage: 680 MG, QCY ; CYCLICAL
     Route: 042
     Dates: start: 20180910, end: 20180910
  10. OXALIPLATIN CONCENTRATE FOR SOLUTION FOR INFUSION [Suspect]
     Active Substance: OXALIPLATIN
     Dosage: 160 MG, QCY ; CYCLICAL
     Route: 042
     Dates: start: 20180910, end: 20180910
  11. SIMVASTATIN. [Concomitant]
     Active Substance: SIMVASTATIN
     Indication: ILL-DEFINED DISORDER
     Dosage: 20 MG, QD
     Route: 065
  12. METFORMIN [Concomitant]
     Active Substance: METFORMIN HYDROCHLORIDE
     Indication: ILL-DEFINED DISORDER
     Dosage: 1000 MG, BID
     Route: 065
  13. VIANI [Concomitant]
     Active Substance: FLUTICASONE PROPIONATE\SALMETEROL XINAFOATE
     Indication: ILL-DEFINED DISORDER
     Dosage: 250 UG, PRN ; AS NECESSARY
  14. LISINOPRIL. [Concomitant]
     Active Substance: LISINOPRIL
     Indication: ADVERSE EVENT
     Dosage: 30 MG, QD
     Dates: start: 20180820
  15. AFLIBERCEPT [Suspect]
     Active Substance: AFLIBERCEPT
     Indication: RECTAL CANCER
     Dosage: QCY; CYCLICAL
     Route: 042
     Dates: start: 20180731, end: 20180731
  16. DEXAMETHASON                       /00016001/ [Concomitant]
     Active Substance: DEXAMETHASONE
     Indication: PREMEDICATION
     Dosage: 8 MG, QOW, 2 WEEK
     Route: 065
     Dates: start: 20180731
  17. ALOXI [Concomitant]
     Active Substance: PALONOSETRON HYDROCHLORIDE
     Indication: PREMEDICATION
     Dosage: 500 UG, QOW, 2 WEEK
     Route: 065
     Dates: start: 20180731

REACTIONS (2)
  - Transient ischaemic attack [Recovered/Resolved]
  - Dyspnoea [Recovered/Resolved]

NARRATIVE: CASE EVENT DATE: 20180914
